FAERS Safety Report 4465418-X (Version None)
Quarter: 2004Q4

REPORT INFORMATION
  Report Type: 
  Country: None (occurrence: None)
  Receive Date: 20041004
  Receipt Date: 20031119
  Transmission Date: 20050328
  Serious: Yes (Hospitalization)
  Sender: FDA-Public Use
  Company Number: BR-GLAXOSMITHKLINE-A0528103A

PATIENT
  Sex: Male
  Weight: 9 kg

DRUGS (1)
  1. AMOXICILLIN AND CLAVULANATE POTASSIUM [Suspect]
     Indication: DRUG USE FOR UNKNOWN INDICATION
     Dosage: 2.5ML TWICE PER DAY
     Route: 048
     Dates: start: 20031115, end: 20031117

REACTIONS (2)
  - OEDEMA [None]
  - PRURITUS [None]
